FAERS Safety Report 21448854 (Version 2)
Quarter: 2025Q2

REPORT INFORMATION
  Report Type: Spontaneous
  Country: DE (occurrence: DE)
  Receive Date: 20221013
  Receipt Date: 20250618
  Transmission Date: 20250717
  Serious: Yes (Hospitalization)
  Sender: AUROBINDO
  Company Number: DE-BAYER-2022A133022

PATIENT
  Sex: Male
  Weight: 1.4 kg

DRUGS (4)
  1. MEROPENEM [Suspect]
     Active Substance: MEROPENEM
     Indication: Oligohydramnios
     Route: 012
  2. MEROPENEM [Suspect]
     Active Substance: MEROPENEM
     Indication: Pathogen resistance
  3. CIPROFLOXACIN LACTATE [Suspect]
     Active Substance: CIPROFLOXACIN LACTATE
     Indication: Oligohydramnios
     Dosage: 1 DOSAGE FORM, ONCE A DAY (STRENGTH 400/200 MILLIGRAM PER MILLILITRE)
     Route: 012
  4. CIPROFLOXACIN LACTATE [Suspect]
     Active Substance: CIPROFLOXACIN LACTATE
     Indication: Oligohydramnios
     Dosage: 1000 MILLIGRAM, ONCE A DAY (500 MG, BID)
     Route: 064

REACTIONS (5)
  - Low birth weight baby [Recovered/Resolved]
  - Premature baby [Unknown]
  - Apgar score low [Recovered/Resolved]
  - Umbilical cord blood pH [Recovered/Resolved]
  - Foetal exposure during pregnancy [Unknown]
